FAERS Safety Report 24414004 (Version 5)
Quarter: 2025Q1

REPORT INFORMATION
  Report Type: Spontaneous
  Country: CZ (occurrence: CZ)
  Receive Date: 20241008
  Receipt Date: 20250115
  Transmission Date: 20250408
  Serious: Yes (Other)
  Sender: MERCK
  Company Number: CZ-009507513-2410CZE000904

PATIENT
  Age: 65 Year
  Sex: Female

DRUGS (6)
  1. SITAGLIPTIN PHOSPHATE [Suspect]
     Active Substance: SITAGLIPTIN PHOSPHATE
     Indication: Diabetes mellitus
     Dosage: 100 MILLIGRAM, QD
     Route: 048
  2. METFORMIN [Concomitant]
     Active Substance: METFORMIN HYDROCHLORIDE
     Indication: Diabetes mellitus
     Dosage: 2000 MG PER DAY
     Dates: start: 2018
  3. PERINDOPRIL [Concomitant]
     Active Substance: PERINDOPRIL
  4. AMLODIPINE [Concomitant]
     Active Substance: AMLODIPINE BESYLATE
  5. INDAPAMIDE [Concomitant]
     Active Substance: INDAPAMIDE
  6. ROSUVASTATIN [Concomitant]
     Active Substance: ROSUVASTATIN

REACTIONS (2)
  - Diabetes mellitus inadequate control [Recovering/Resolving]
  - Drug ineffective [Recovering/Resolving]
